FAERS Safety Report 17149459 (Version 1)
Quarter: 2019Q4

REPORT INFORMATION
  Report Type: Other
  Country: CA (occurrence: CA)
  Receive Date: 20191213
  Receipt Date: 20191213
  Transmission Date: 20200122
  Serious: Yes (Life-Threatening, Hospitalization, Other)
  Sender: FDA-Public Use
  Company Number: CA-APOTEX-2019AP025877

PATIENT
  Age: 52 Year
  Sex: Male

DRUGS (14)
  1. RISPERIDONE. [Suspect]
     Active Substance: RISPERIDONE
     Dosage: 4 MG, QD
     Route: 065
  2. CLOZAPINE. [Suspect]
     Active Substance: CLOZAPINE
     Dosage: 125 MG, QD
     Route: 065
  3. CLOZAPINE. [Suspect]
     Active Substance: CLOZAPINE
     Dosage: 75 UNK, UNK
     Route: 065
  4. CLOZAPINE. [Suspect]
     Active Substance: CLOZAPINE
     Dosage: 75 MG, UNK
     Route: 065
  5. LOXAPINE. [Concomitant]
     Active Substance: LOXAPINE
     Indication: PRODUCT USED FOR UNKNOWN INDICATION
     Dosage: UNK
     Route: 065
  6. CLOZAPINE. [Suspect]
     Active Substance: CLOZAPINE
     Indication: PSYCHOTIC DISORDER
     Dosage: 100 MG, UNK
     Route: 065
  7. CLOZAPINE. [Suspect]
     Active Substance: CLOZAPINE
     Dosage: 25 MG, QD
     Route: 065
  8. RISPERIDONE. [Suspect]
     Active Substance: RISPERIDONE
     Indication: PRODUCT USED FOR UNKNOWN INDICATION
     Dosage: 3 MG, QD
     Route: 065
  9. CLOZAPINE. [Suspect]
     Active Substance: CLOZAPINE
     Dosage: 100 MG, QID
     Route: 065
  10. CITALOPRAM [Concomitant]
     Active Substance: CITALOPRAM HYDROBROMIDE
     Indication: PRODUCT USED FOR UNKNOWN INDICATION
     Dosage: UNK
     Route: 065
  11. QUETIAPINE. [Concomitant]
     Active Substance: QUETIAPINE
     Indication: PRODUCT USED FOR UNKNOWN INDICATION
     Dosage: UNK
     Route: 065
  12. CLOZAPINE. [Suspect]
     Active Substance: CLOZAPINE
     Indication: SCHIZOPHRENIA
     Dosage: 75 MG, UNK
     Route: 065
  13. ABILIFY [Suspect]
     Active Substance: ARIPIPRAZOLE
     Indication: PRODUCT USED FOR UNKNOWN INDICATION
     Dosage: 4 MG, UNK
     Route: 065
  14. CLOZAPINE. [Suspect]
     Active Substance: CLOZAPINE
     Dosage: 50 MG, QD
     Route: 065

REACTIONS (20)
  - Hallucination, visual [Not Recovered/Not Resolved]
  - Hyperhidrosis [Not Recovered/Not Resolved]
  - Blood glucose increased [Not Recovered/Not Resolved]
  - Haemoglobin increased [Not Recovered/Not Resolved]
  - Confusional state [Not Recovered/Not Resolved]
  - Body temperature increased [Not Recovered/Not Resolved]
  - Blood calcium decreased [Not Recovered/Not Resolved]
  - Chronic kidney disease [Not Recovered/Not Resolved]
  - Protein total increased [Not Recovered/Not Resolved]
  - Blood bilirubin increased [Not Recovered/Not Resolved]
  - Blood phosphorus increased [Not Recovered/Not Resolved]
  - Tachycardia [Not Recovered/Not Resolved]
  - Adjusted calcium increased [Not Recovered/Not Resolved]
  - Troponin I increased [Not Recovered/Not Resolved]
  - Bilirubin urine present [Not Recovered/Not Resolved]
  - Blood sodium increased [Not Recovered/Not Resolved]
  - Neuroleptic malignant syndrome [Not Recovered/Not Resolved]
  - Agitation [Not Recovered/Not Resolved]
  - Incontinence [Not Recovered/Not Resolved]
  - Alanine aminotransferase increased [Not Recovered/Not Resolved]
